FAERS Safety Report 10242046 (Version 1)
Quarter: 2014Q2

REPORT INFORMATION
  Report Type: Spontaneous
  Country: GB (occurrence: GB)
  Receive Date: 20140617
  Receipt Date: 20140617
  Transmission Date: 20141212
  Serious: Yes (Other)
  Sender: FDA-Public Use
  Company Number: PHHY2014GB070946

PATIENT
  Sex: Female

DRUGS (4)
  1. DIGOXIN [Suspect]
     Indication: SUPRAVENTRICULAR TACHYCARDIA
     Dosage: 125 UG, BID
  2. FLECAINIDE [Suspect]
     Indication: SUPRAVENTRICULAR TACHYCARDIA
     Dosage: 100 MG, TID
     Route: 048
  3. FLECAINIDE [Suspect]
     Dosage: 100 MG, TID
  4. ATENOLOL [Suspect]
     Indication: SUPRAVENTRICULAR TACHYCARDIA
     Dosage: 50 MG, BID
     Route: 048

REACTIONS (2)
  - Gestational hypertension [Unknown]
  - Maternal exposure during pregnancy [Unknown]
